FAERS Safety Report 5723044-6 (Version None)
Quarter: 2008Q2

REPORT INFORMATION
  Report Type: 
  Country: None (occurrence: None)
  Receive Date: 20080428
  Receipt Date: 20080428
  Transmission Date: 20081010
  Serious: Yes (Hospitalization)
  Sender: FDA-Public Use
  Company Number: None

PATIENT
  Sex: Male
  Weight: 76.5 kg

DRUGS (1)
  1. CISPLATIN [Suspect]
     Dosage: 188 MG
     Dates: end: 20080414

REACTIONS (9)
  - DIALYSIS [None]
  - FAECES DISCOLOURED [None]
  - HYDRONEPHROSIS [None]
  - HYPOTENSION [None]
  - HYPOVOLAEMIA [None]
  - MELAENA [None]
  - METABOLIC ACIDOSIS [None]
  - RENAL FAILURE ACUTE [None]
  - VOMITING [None]
